FAERS Safety Report 5914798-4 (Version None)
Quarter: 2008Q4

REPORT INFORMATION
  Report Type: 
  Country: None (occurrence: None)
  Receive Date: 20081010
  Receipt Date: 20080929
  Transmission Date: 20090506
  Serious: Yes (Hospitalization, Other)
  Sender: FDA-Public Use
  Company Number: IT-ROCHE-571401

PATIENT
  Sex: Female
  Weight: 90 kg

DRUGS (4)
  1. PEGASYS [Suspect]
     Dosage: DOSE: 180. STRENGHT: 180.
     Route: 065
     Dates: start: 20051003, end: 20060101
  2. PEGASYS [Suspect]
     Dosage: DOSE: 90.
     Route: 065
     Dates: start: 20060101, end: 20060201
  3. PEGASYS [Suspect]
     Dosage: DOSE: 135.
     Route: 065
     Dates: start: 20060201, end: 20061114
  4. RIBAVIRIN [Suspect]
     Dosage: DOSE: 1200.
     Route: 065
     Dates: start: 20051003, end: 20061114

REACTIONS (4)
  - CEREBRAL ISCHAEMIA [None]
  - HYPERTENSIVE CRISIS [None]
  - NEUTROPENIA [None]
  - PYRAMIDAL TRACT SYNDROME [None]
